FAERS Safety Report 9011571 (Version 4)
Quarter: 2014Q2

REPORT INFORMATION
  Report Type: Spontaneous
  Country: DK (occurrence: DK)
  Receive Date: 20130108
  Receipt Date: 20140514
  Transmission Date: 20141212
  Serious: Yes (Hospitalization, Other)
  Sender: FDA-Public Use
  Company Number: DK-AMGEN-DNKSP2013000397

PATIENT
  Age: 75 Year
  Sex: Female
  Weight: 65 kg

DRUGS (16)
  1. PEGFILGRASTIM [Suspect]
     Indication: PRODUCT USED FOR UNKNOWN INDICATION
     Dosage: UNK
     Route: 065
  2. CYCLOPHOSPHAMIDE [Suspect]
     Indication: BREAST CANCER
     Dosage: 900 MG, 1 IN 3 WK
     Route: 042
     Dates: start: 20121114
  3. CYCLOPHOSPHAMIDE [Suspect]
     Dosage: 900 MG, 1 IN 3 WK
     Route: 042
     Dates: start: 20121205
  4. CYCLOPHOSPHAMIDE [Suspect]
     Dosage: 500 MG, 1 IN 3 WK
     Route: 065
  5. EPIRUBICIN HYDROCHLORIDE [Suspect]
     Indication: BREAST CANCER
     Dosage: 150 MG, 1 IN 3 WK
     Route: 042
     Dates: start: 20121114
  6. EPIRUBICIN HYDROCHLORIDE [Suspect]
     Dosage: 900 MG, 1 IN 3 WK
     Route: 042
     Dates: start: 20121205
  7. EPIRUBICIN HYDROCHLORIDE [Suspect]
     Dosage: 85 MG, 1 IN 3 WK
     Route: 065
  8. FLUOROURACIL 5 FU [Suspect]
     Indication: BREAST CANCER
     Dosage: 900 MG, 1 IN 3 WK
     Route: 042
     Dates: start: 20121114
  9. FLUOROURACIL 5 FU [Suspect]
     Dosage: 900 MG, 1 IN 3 WK
     Route: 042
     Dates: start: 20121205
  10. FLUOROURACIL 5 FU [Suspect]
     Dosage: 500 MG, 1 IN 3 WK
     Route: 065
  11. PREDNISOLON                        /00016201/ [Concomitant]
     Indication: PRODUCT USED FOR UNKNOWN INDICATION
     Dosage: 50 MG ON DAY 1, 25 MG ON DAY 2 + 3
     Route: 065
     Dates: start: 20121114
  12. ONDANSETRON [Concomitant]
     Indication: PRODUCT USED FOR UNKNOWN INDICATION
     Dosage: 16 MG ON DAY 1, 8 MG ON DAY 2
     Route: 065
     Dates: start: 20121114
  13. EMEND                              /01627301/ [Concomitant]
     Indication: PRODUCT USED FOR UNKNOWN INDICATION
     Dosage: 120 MG ON DAY 1, 80MG DAY 2+3
     Route: 065
     Dates: start: 20121114
  14. EMPERAL [Concomitant]
     Indication: PRODUCT USED FOR UNKNOWN INDICATION
     Dosage: 10 TO 20 MG  PRN
     Route: 065
     Dates: start: 20121114
  15. MULTIVITAMINS, PLAIN [Concomitant]
     Dosage: UNK
  16. IRON [Concomitant]
     Dosage: UNK

REACTIONS (2)
  - Pyrexia [Recovered/Resolved]
  - Febrile neutropenia [Recovered/Resolved]
